FAERS Safety Report 5684672-X (Version None)
Quarter: 2008Q1

REPORT INFORMATION
  Report Type: 
  Country: None (occurrence: None)
  Receive Date: 20080328
  Receipt Date: 20070529
  Transmission Date: 20080703
  Serious: Yes (Hospitalization)
  Sender: FDA-Public Use
  Company Number: US-BRISTOL-MYERS SQUIBB COMPANY-13796651

PATIENT
  Sex: Female
  Weight: 78 kg

DRUGS (8)
  1. ERBITUX [Suspect]
     Indication: LARYNGEAL CANCER
     Route: 042
  2. LOTENSIN [Concomitant]
  3. CRESTOR [Concomitant]
  4. METOPROLOL TARTRATE [Concomitant]
  5. ASPIRIN [Concomitant]
  6. NORVASC [Concomitant]
  7. ALLOPURINOL [Concomitant]
  8. MAGNESIUM OXIDE [Concomitant]

REACTIONS (8)
  - DYSPHONIA [None]
  - HYPOTENSION [None]
  - INFUSION RELATED REACTION [None]
  - MUSCULAR WEAKNESS [None]
  - NAUSEA [None]
  - OXYGEN SATURATION DECREASED [None]
  - RASH [None]
  - URTICARIA [None]
